FAERS Safety Report 7187043-2 (Version None)
Quarter: 2010Q4

REPORT INFORMATION
  Report Type: 
  Country: None (occurrence: None)
  Receive Date: 20101222
  Receipt Date: 20100804
  Transmission Date: 20110411
  Serious: No
  Sender: FDA-Public Use
  Company Number: US-AMGEN-TCS420334

PATIENT

DRUGS (3)
  1. ENBREL [Suspect]
     Indication: RHEUMATOID ARTHRITIS
     Dosage: 50 MG, QWK
     Route: 058
     Dates: start: 20100218
  2. PREDNISONE [Concomitant]
     Dosage: UNK UNK, UNK
     Dates: start: 20091215
  3. CELECOXIB [Concomitant]
     Dosage: UNK UNK, UNK
     Dates: start: 20091215

REACTIONS (4)
  - HYPERSENSITIVITY [None]
  - INJECTION SITE ERYTHEMA [None]
  - RASH PRURITIC [None]
  - SECRETION DISCHARGE [None]
